FAERS Safety Report 6468139-7 (Version None)
Quarter: 2009Q4

REPORT INFORMATION
  Report Type: 
  Country: None (occurrence: None)
  Receive Date: 20091202
  Receipt Date: 20091125
  Transmission Date: 20100525
  Serious: Yes (Other)
  Sender: FDA-Public Use
  Company Number: JP-MERCK-0910USA00082

PATIENT
  Age: 77 Year
  Sex: Male
  Weight: 50 kg

DRUGS (9)
  1. PEPCID [Suspect]
     Route: 041
     Dates: start: 20090724, end: 20090902
  2. TARGOCID [Suspect]
     Route: 041
     Dates: start: 20090819, end: 20090819
  3. TARGOCID [Suspect]
     Route: 041
     Dates: start: 20090821, end: 20090827
  4. TARGOCID [Suspect]
     Route: 041
     Dates: start: 20090820, end: 20090820
  5. FLUMARIN [Concomitant]
     Route: 065
     Dates: start: 20090723, end: 20090726
  6. FINIBAX [Concomitant]
     Indication: PNEUMONIA
     Route: 065
     Dates: start: 20090726, end: 20090730
  7. MODACIN [Concomitant]
     Indication: PSEUDOMONAS INFECTION
     Route: 065
     Dates: start: 20090730, end: 20090812
  8. FUNGUARD [Concomitant]
     Indication: INFLAMMATION
     Route: 065
     Dates: start: 20090802, end: 20090818
  9. PENTCILLIN [Concomitant]
     Route: 065
     Dates: start: 20090815, end: 20090819

REACTIONS (2)
  - HAEMATURIA [None]
  - RENAL IMPAIRMENT [None]
